FAERS Safety Report 6748477-0 (Version None)
Quarter: 2010Q2

REPORT INFORMATION
  Report Type: 
  Country: None (occurrence: None)
  Receive Date: 20100527
  Receipt Date: 20100527
  Transmission Date: 20101027
  Serious: Yes (Other)
  Sender: FDA-Public Use
  Company Number: None

PATIENT
  Sex: Female
  Weight: 56.6996 kg

DRUGS (1)
  1. VALIUM [Suspect]
     Indication: PANIC ATTACK
     Dosage: 5 MG 2 QID PO
     Route: 048
     Dates: start: 20000101

REACTIONS (3)
  - ANXIETY [None]
  - PANIC ATTACK [None]
  - PRODUCT SUBSTITUTION ISSUE [None]
